FAERS Safety Report 19610677 (Version 1)
Quarter: 2021Q3

REPORT INFORMATION
  Report Type: Spontaneous
  Country: US (occurrence: US)
  Receive Date: 20210726
  Receipt Date: 20210726
  Transmission Date: 20211014
  Serious: No
  Sender: FDA-Public Use
  Company Number: US-PFIZER INC-2021444897

PATIENT
  Age: 70 Year
  Sex: Male

DRUGS (3)
  1. INLYTA [Suspect]
     Active Substance: AXITINIB
     Indication: RENAL CANCER
     Dosage: 100 MG
  2. ELIQUIS [Concomitant]
     Active Substance: APIXABAN
     Indication: ATRIAL FIBRILLATION
  3. ELIQUIS [Concomitant]
     Active Substance: APIXABAN
     Indication: PULMONARY EMBOLISM

REACTIONS (7)
  - Dyspnoea [Unknown]
  - Asthenia [Unknown]
  - Weight decreased [Unknown]
  - Product prescribing error [Unknown]
  - Chest discomfort [Unknown]
  - Fatigue [Unknown]
  - Dysstasia [Unknown]
